FAERS Safety Report 4887382-1 (Version None)
Quarter: 2006Q1

REPORT INFORMATION
  Report Type: 
  Country: None (occurrence: None)
  Receive Date: 20060123
  Receipt Date: 20060111
  Transmission Date: 20060701
  Serious: Yes (Other)
  Sender: FDA-Public Use
  Company Number: FR-JNJFOC-20060102716

PATIENT
  Age: 45 Year
  Sex: Male

DRUGS (1)
  1. REMICADE [Suspect]
     Route: 042

REACTIONS (4)
  - CARDIAC DISORDER [None]
  - CYTOLYTIC HEPATITIS [None]
  - INFUSION RELATED REACTION [None]
  - RASH [None]
